FAERS Safety Report 5699453-0 (Version None)
Quarter: 2008Q2

REPORT INFORMATION
  Report Type: 
  Country: None (occurrence: None)
  Receive Date: 20080407
  Receipt Date: 20080407
  Transmission Date: 20081010
  Serious: Yes (Hospitalization)
  Sender: FDA-Public Use
  Company Number: None

PATIENT
  Sex: Female
  Weight: 59.8 kg

DRUGS (4)
  1. VINCRISTINE [Suspect]
     Indication: ACUTE LYMPHOCYTIC LEUKAEMIA RECURRENT
     Dosage: DAY 7 - 3/25/08 DAY 14 - 4/1/08
     Dates: start: 20080325
  2. VINCRISTINE [Suspect]
     Indication: ACUTE LYMPHOCYTIC LEUKAEMIA RECURRENT
     Dosage: DAY 7 - 3/25/08 DAY 14 - 4/1/08
     Dates: start: 20080401
  3. MAB 216 [Suspect]
     Indication: ACUTE LYMPHOCYTIC LEUKAEMIA RECURRENT
     Dosage: DAY 0 (3/18/08) DAY 7 (3/25/08) IV
     Route: 042
     Dates: start: 20080318
  4. MAB 216 [Suspect]
     Indication: ACUTE LYMPHOCYTIC LEUKAEMIA RECURRENT
     Dosage: DAY 0 (3/18/08) DAY 7 (3/25/08) IV
     Route: 042
     Dates: start: 20080325

REACTIONS (1)
  - FEBRILE NEUTROPENIA [None]
